APPROVED DRUG PRODUCT: CAPECITABINE
Active Ingredient: CAPECITABINE
Strength: 150MG
Dosage Form/Route: TABLET;ORAL
Application: A210203 | Product #001 | TE Code: AB
Applicant: HETERO LABS LTD UNIT V
Approved: Mar 5, 2024 | RLD: No | RS: No | Type: RX